FAERS Safety Report 7452812-8 (Version None)
Quarter: 2011Q2

REPORT INFORMATION
  Report Type: 
  Country: None (occurrence: None)
  Receive Date: 20110502
  Receipt Date: 20101108
  Transmission Date: 20111010
  Serious: No
  Sender: FDA-Public Use
  Company Number: US-ASTRAZENECA-2010SE53783

PATIENT
  Sex: Male

DRUGS (2)
  1. NEXIUM [Suspect]
     Dosage: TWO TIMES A DAY
     Route: 048
  2. NEXIUM [Suspect]
     Dosage: ONCE PER DAY
     Route: 048

REACTIONS (6)
  - REGURGITATION [None]
  - MALAISE [None]
  - DRUG DOSE OMISSION [None]
  - RHINORRHOEA [None]
  - VOMITING [None]
  - DRUG INEFFECTIVE [None]
